FAERS Safety Report 8812698 (Version 3)
Quarter: 2013Q1

REPORT INFORMATION
  Report Type: Spontaneous
  Country: AT (occurrence: AT)
  Receive Date: 20120927
  Receipt Date: 20130207
  Transmission Date: 20140127
  Serious: Yes (Death, Hospitalization)
  Sender: FDA-Public Use
  Company Number: AT-GENZYME-POMP-1002368

PATIENT
  Sex: Male

DRUGS (1)
  1. MYOZYME [Suspect]
     Indication: GLYCOGEN STORAGE DISEASE TYPE II
     Dosage: 300 MG, Q2W
     Route: 042
     Dates: start: 20100202, end: 20120827

REACTIONS (7)
  - Supraventricular tachycardia [Fatal]
  - Bradycardia [Fatal]
  - Cardiac arrest [Fatal]
  - Myopathy [Fatal]
  - Therapeutic response decreased [Not Recovered/Not Resolved]
  - Electrolyte imbalance [Fatal]
  - Pyrexia [Fatal]
